FAERS Safety Report 22159470 (Version 2)
Quarter: 2023Q2

REPORT INFORMATION
  Report Type: Spontaneous
  Country: US (occurrence: US)
  Receive Date: 20230331
  Receipt Date: 20230414
  Transmission Date: 20230722
  Serious: No
  Sender: FDA-Public Use
  Company Number: US-LUPIN PHARMACEUTICALS INC.-2023-02424

PATIENT

DRUGS (2)
  1. AMLODIPINE BESYLATE [Suspect]
     Active Substance: AMLODIPINE BESYLATE
     Indication: Hypertension
     Dosage: UNK
     Route: 065
     Dates: start: 20230320
  2. PREDNISONE [Concomitant]
     Active Substance: PREDNISONE
     Indication: Chronic kidney disease
     Dosage: 5 MILLIGRAM
     Route: 065

REACTIONS (2)
  - Drug ineffective [Unknown]
  - Product quality issue [Unknown]

NARRATIVE: CASE EVENT DATE: 20230320
